FAERS Safety Report 4347654-6 (Version None)
Quarter: 2004Q2

REPORT INFORMATION
  Report Type: 
  Country: None (occurrence: None)
  Receive Date: 20040422
  Receipt Date: 20040413
  Transmission Date: 20050107
  Serious: Yes (Other)
  Sender: FDA-Public Use
  Company Number: 2004UW07442

PATIENT
  Age: 69 Year
  Sex: Female

DRUGS (1)
  1. SEROQUEL [Suspect]
     Dosage: 25 MG DAILY PO
     Route: 048

REACTIONS (1)
  - THROMBOCYTOPENIA [None]
